FAERS Safety Report 5087556-3 (Version None)
Quarter: 2006Q3

REPORT INFORMATION
  Report Type: 
  Country: None (occurrence: None)
  Receive Date: 20060824
  Receipt Date: 20060821
  Transmission Date: 20061208
  Serious: Yes (Other)
  Sender: FDA-Public Use
  Company Number: NL-GLAXOSMITHKLINE-B0435397A

PATIENT
  Age: 77 Year
  Sex: Female
  Weight: 69 kg

DRUGS (2)
  1. ROSIGLITAZONE MALEATE [Suspect]
     Indication: DIABETES MELLITUS NON-INSULIN-DEPENDENT
     Dosage: 4MG PER DAY
     Dates: start: 20050601, end: 20060629
  2. UNKNOWN DRUG [Concomitant]

REACTIONS (2)
  - OEDEMA [None]
  - PANCYTOPENIA [None]
